FAERS Safety Report 9148276 (Version 1)
Quarter: 2013Q1

REPORT INFORMATION
  Report Type: Spontaneous
  Country: US (occurrence: None)
  Receive Date: 20130228
  Receipt Date: 20130228
  Transmission Date: 20140127
  Serious: Yes (Other)
  Sender: FDA-Public Use
  Company Number: None

PATIENT
  Sex: Female

DRUGS (1)
  1. SIMPONI [Suspect]
     Indication: ANKYLOSING SPONDYLITIS
     Dosage: 50 MG   MONTHLY  SUBCUTANEOUS
     Route: 058
     Dates: start: 201112, end: 201301

REACTIONS (2)
  - Psoriasis [None]
  - Rash pruritic [None]
